FAERS Safety Report 8063282-3 (Version None)
Quarter: 2012Q1

REPORT INFORMATION
  Report Type: 
  Country: None (occurrence: None)
  Receive Date: 20120123
  Receipt Date: 20120120
  Transmission Date: 20120608
  Serious: Yes (Death, Hospitalization)
  Sender: FDA-Public Use
  Company Number: PHHO2010BE13476

PATIENT

DRUGS (12)
  1. DAUNORUBICIN HCL [Concomitant]
  2. SYMBICORT [Concomitant]
  3. CYTARABINE [Concomitant]
  4. NOXAFIL [Concomitant]
  5. ETOPOSIDE [Concomitant]
  6. EUSAPRIM [Concomitant]
  7. MAGNUM [Concomitant]
  8. ANTHRACYCLINES AND RELATED SUBSTANCES [Suspect]
     Dosage: UNK
     Dates: start: 20030101, end: 20040201
  9. VITAMIN D [Concomitant]
  10. ZOVIRAX [Concomitant]
  11. LETROZOLE [Suspect]
     Indication: BREAST CANCER
     Dosage: 2.5 MG, QD
     Route: 048
     Dates: start: 20090528, end: 20100830
  12. ASAFLOW [Concomitant]
     Dosage: UNK

REACTIONS (2)
  - ACUTE MYELOID LEUKAEMIA [None]
  - NEOPLASM MALIGNANT [None]
